FAERS Safety Report 14899833 (Version 1)
Quarter: 2018Q2

REPORT INFORMATION
  Report Type: Spontaneous
  Country: US (occurrence: US)
  Receive Date: 20180516
  Receipt Date: 20180516
  Transmission Date: 20180711
  Serious: Yes (Life-Threatening, Hospitalization)
  Sender: FDA-Public Use
  Company Number: US-SUN PHARMACEUTICAL INDUSTRIES LTD-2018US-172084

PATIENT
  Age: 53 Year
  Sex: Male

DRUGS (1)
  1. TESTOSTERONE. [Suspect]
     Active Substance: TESTOSTERONE
     Indication: SUPPLEMENTATION THERAPY
     Route: 030

REACTIONS (3)
  - Cardiac failure [Unknown]
  - Drug level increased [Unknown]
  - Cardiomyopathy [Unknown]
